FAERS Safety Report 5160144-6 (Version None)
Quarter: 2006Q4

REPORT INFORMATION
  Report Type: 
  Country: None (occurrence: None)
  Receive Date: 20061129
  Receipt Date: 20061012
  Transmission Date: 20070319
  Serious: Yes (Hospitalization, Disabling, Other)
  Sender: FDA-Public Use
  Company Number: 2006GB01843

PATIENT
  Age: 15 Year
  Sex: Male
  Weight: 60 kg

DRUGS (8)
  1. SEROQUEL [Suspect]
     Indication: BIPOLAR DISORDER
     Route: 048
     Dates: start: 20060727
  2. SEROQUEL [Suspect]
     Indication: AGGRESSION
     Route: 048
     Dates: start: 20060727
  3. SEROQUEL [Suspect]
     Indication: HYPOMANIA
     Route: 048
     Dates: start: 20060727
  4. VALPROATE SODIUM [Suspect]
     Indication: AFFECTIVE DISORDER
     Route: 048
     Dates: start: 20060904, end: 20061010
  5. VALPROATE SODIUM [Suspect]
     Indication: MOOD SWINGS
     Route: 048
     Dates: start: 20060904, end: 20061010
  6. FLUOXETINE [Concomitant]
     Indication: AFFECTIVE DISORDER
     Route: 048
     Dates: start: 20060824, end: 20061014
  7. FLUOXETINE [Concomitant]
     Indication: BIPOLAR DISORDER
     Route: 048
     Dates: start: 20060824, end: 20061014
  8. FLUOXETINE [Concomitant]
     Indication: DEPRESSION
     Route: 048
     Dates: start: 20060824, end: 20061014

REACTIONS (3)
  - DEEP VEIN THROMBOSIS [None]
  - PROTEIN S DECREASED [None]
  - PULMONARY EMBOLISM [None]
